FAERS Safety Report 19442559 (Version 1)
Quarter: 2021Q2

REPORT INFORMATION
  Report Type: Spontaneous
  Country: US (occurrence: US)
  Receive Date: 20210619
  Receipt Date: 20210619
  Transmission Date: 20210717
  Serious: No
  Sender: FDA-Public Use
  Company Number: None

PATIENT
  Age: 64 Year
  Sex: Female
  Weight: 47.25 kg

DRUGS (7)
  1. CALCIUM [Concomitant]
     Active Substance: CALCIUM
  2. GADAVIST [Suspect]
     Active Substance: GADOBUTROL
     Indication: X-RAY WITH CONTRAST
     Dates: start: 20210618, end: 20210618
  3. ONE?A?DAY VITAMIN [Concomitant]
  4. CLOPIDEGREL [Concomitant]
  5. LEVOXYL [Concomitant]
     Active Substance: LEVOTHYROXINE SODIUM
  6. VERAPAMIL [Concomitant]
     Active Substance: VERAPAMIL HYDROCHLORIDE
  7. MERTAZAPINE [Concomitant]
     Active Substance: MIRTAZAPINE

REACTIONS (6)
  - Nausea [None]
  - Feeling abnormal [None]
  - Mental impairment [None]
  - Headache [None]
  - Dizziness [None]
  - Ear congestion [None]

NARRATIVE: CASE EVENT DATE: 20210618
